FAERS Safety Report 7554495-5 (Version None)
Quarter: 2011Q2

REPORT INFORMATION
  Report Type: 
  Country: None (occurrence: None)
  Receive Date: 20110617
  Receipt Date: 20110609
  Transmission Date: 20111010
  Serious: Yes (Hospitalization)
  Sender: FDA-Public Use
  Company Number: B0718776A

PATIENT
  Sex: Male

DRUGS (3)
  1. PREDNISONE [Suspect]
     Indication: MULTIPLE MYELOMA
     Route: 048
     Dates: start: 20100416, end: 20110415
  2. ALKERAN [Suspect]
     Indication: MULTIPLE MYELOMA
     Route: 048
     Dates: start: 20100416, end: 20110415
  3. THALIDOMIDE [Suspect]
     Indication: MULTIPLE MYELOMA
     Dosage: 100MG PER DAY
     Route: 048
     Dates: start: 20100416, end: 20110415

REACTIONS (5)
  - HEMIPLEGIA [None]
  - NEUTROPENIA [None]
  - ISCHAEMIC STROKE [None]
  - ATRIAL FIBRILLATION [None]
  - CEREBRAL ARTERY EMBOLISM [None]
